FAERS Safety Report 5724312-4 (Version None)
Quarter: 2008Q2

REPORT INFORMATION
  Report Type: 
  Country: None (occurrence: None)
  Receive Date: 20080430
  Receipt Date: 20080418
  Transmission Date: 20081010
  Serious: Yes (Other)
  Sender: FDA-Public Use
  Company Number: US-PFIZER INC-2008034894

PATIENT
  Sex: Female
  Weight: 61.2 kg

DRUGS (4)
  1. ZOLOFT [Suspect]
     Indication: DEPRESSION
  2. CHANTIX [Interacting]
     Indication: SMOKING CESSATION THERAPY
     Dates: end: 20080101
  3. LORATADINE [Concomitant]
  4. ENALAPRIL MALEATE [Concomitant]

REACTIONS (11)
  - ABNORMAL DREAMS [None]
  - AGEUSIA [None]
  - DRUG INTERACTION [None]
  - FEELING ABNORMAL [None]
  - HYPERSENSITIVITY [None]
  - NAUSEA [None]
  - ORAL DISCOMFORT [None]
  - SALIVARY HYPERSECRETION [None]
  - TONGUE COATED [None]
  - TONGUE EXFOLIATION [None]
  - TONGUE OEDEMA [None]
